FAERS Safety Report 9298101 (Version 1)
Quarter: 2012Q4

REPORT INFORMATION
  Report Type: Spontaneous
  Country: BR (occurrence: None)
  Receive Date: 20121023
  Receipt Date: 20121023
  Transmission Date: 20130627
  Serious: Yes (Other)
  Sender: FDA-Public Use
  Company Number: ENTC2010-0351

PATIENT
  Age: 66 Year
  Sex: Female
  Weight: 78 kg

DRUGS (16)
  1. STALEVO (LEVODOPA, CARBIDOPA, ENTACAPONE) [Suspect]
     Indication: PARKINSON^S DISEASE
     Dosage: 100/25/200 mg five tablet daily with 150/37.5/200 mg 01 tablet five times daily
     Route: 048
     Dates: start: 2009
  2. STALEVO (LEVODOPA, CARBIDOPA, ENTACAPONE) [Suspect]
     Indication: PARKINSON^S DISEASE
     Dosage: 100/25/200 mg 4x daily with 150/37.5/200 mg 01 tablet four times daily (at 7, 11, 15 and 19 hours)
     Route: 048
  3. STALEVO (LEVODOPA, CARBIDOPA, ENTACAPONE) [Suspect]
     Indication: PARKINSON^S DISEASE
     Dosage: 150/37.5/200 mg 01 tablet four times daily (06:00) and 100 mg at 18:30; 21:30 hours)
     Route: 048
     Dates: start: 20090404
  4. STALEVO (LEVODOPA, CARBIDOPA, ENTACAPONE) [Suspect]
     Indication: PARKINSON^S DISEASE
     Dosage: 100/25/200 mg and 50 mg
     Route: 048
     Dates: start: 201105
  5. RIVOTRIL [Concomitant]
  6. PANTOPRAZOLE [Concomitant]
  7. ATORVASTATIN [Concomitant]
  8. SIFROL [Concomitant]
  9. MANTIDAN [Concomitant]
  10. SINEMET [Concomitant]
  11. MOTILIUM [Concomitant]
  12. ARADOIS H [Concomitant]
  13. EFEXOR XR [Concomitant]
  14. TAMARINE [Concomitant]
  15. LACTULOSE [Concomitant]
  16. COMTAN [Concomitant]

REACTIONS (10)
  - Drug ineffective [None]
  - Akinesia [None]
  - Product quality issue [None]
  - Abdominal pain [None]
  - Constipation [None]
  - Psychomotor hyperactivity [None]
  - Pallor [None]
  - Hyperhidrosis [None]
  - Insomnia [None]
  - Abdominal pain [None]
